FAERS Safety Report 15221264 (Version 1)
Quarter: 2018Q3

REPORT INFORMATION
  Report Type: Spontaneous
  Country: KR (occurrence: KR)
  Receive Date: 20180731
  Receipt Date: 20180731
  Transmission Date: 20181010
  Serious: Yes (Death, Other)
  Sender: FDA-Public Use
  Company Number: KR-009507513-1807KOR011834

PATIENT
  Sex: Male

DRUGS (9)
  1. NORFERRO [Concomitant]
     Dosage: 8 TIMES IN 1 DAY
     Dates: start: 20180523, end: 20180529
  2. LACIDOFIL [Concomitant]
     Active Substance: LACTOBACILLUS ACIDOPHILUS\LACTOBACILLUS RHAMNOSUS
     Dosage: 37 TIMES IN 1 DAY
     Dates: start: 20180512, end: 20180529
  3. RESOLOR [Concomitant]
     Active Substance: PRUCALOPRIDE SUCCINATE
     Dosage: 13 TIMES IN 1 DAY
     Dates: start: 20180516, end: 20180527
  4. ADDAMEL N [Concomitant]
     Active Substance: CHROMIC CHLORIDE\CUPROUS CHLORIDE\FERRIC CHLORIDE\MANGANESE CHLORIDE\POTASSIUM IODIDE\SODIUM FLUORIDE\SODIUM MOLYBDATE DIHYDRATE\SODIUM SELENITE\ZINC CHLORIDE
     Dosage: TWICE IN 1 DAY
     Dates: start: 20180523, end: 20180525
  5. DENOGAN [Concomitant]
     Active Substance: PROPACETAMOL HYDROCHLORIDE
     Dosage: 43 TIMES IN 1 DAY
     Dates: start: 20180514, end: 20180530
  6. KEYTRUDA [Suspect]
     Active Substance: PEMBROLIZUMAB
     Indication: SARCOMA
     Dosage: TWICE IN 1 DAY
     Dates: start: 20180517
  7. VANCOMYCIN [Concomitant]
     Active Substance: VANCOMYCIN
     Dosage: UNK
     Dates: start: 20180524, end: 20180530
  8. PMS NYSTATIN [Concomitant]
     Dosage: 100 KIU/ML, 105 TIMES IN 1 DAY
     Dates: start: 20180523, end: 20180529
  9. CERNEVIT [Concomitant]
     Active Substance: VITAMINS
     Dosage: TWICE IN A DAY
     Dates: start: 20180521, end: 20180522

REACTIONS (2)
  - Death [Fatal]
  - Product use in unapproved indication [Unknown]

NARRATIVE: CASE EVENT DATE: 2018
